FAERS Safety Report 6595115-6 (Version None)
Quarter: 2010Q1

REPORT INFORMATION
  Report Type: 
  Country: None (occurrence: None)
  Receive Date: 20100212
  Receipt Date: 20100202
  Transmission Date: 20100710
  Serious: Yes (Hospitalization)
  Sender: FDA-Public Use
  Company Number: 1000003562

PATIENT
  Age: 67 Year
  Sex: Female
  Weight: 131 kg

DRUGS (12)
  1. CITALOPRAM HYDROBROMIDE [Suspect]
     Indication: DEPRESSION
     Dosage: 20 MG (20 MG, 1 IN 1 D), ORAL
     Route: 048
     Dates: start: 20061001
  2. TRANSTEC (POULTICE OR PATCH) [Suspect]
     Indication: ANALGESIC THERAPY
     Dosage: 8.5714 MG (30 MG, 2 IN 1 WK), TRANSDERMAL
     Route: 062
     Dates: start: 20070801
  3. ASPIRIN [Concomitant]
  4. CYNT [Concomitant]
  5. LISINOPRIL [Concomitant]
  6. METFORMIN HYDROCHLORIDE [Concomitant]
  7. MOVICOL [Concomitant]
  8. OMEP [Concomitant]
  9. SIMVASTATIN [Concomitant]
  10. STARLIX [Concomitant]
  11. TOREM [Concomitant]
  12. BELOK ZOK [Concomitant]

REACTIONS (12)
  - BLOOD CREATININE INCREASED [None]
  - BLOOD FIBRINOGEN INCREASED [None]
  - BLOOD GLUCOSE INCREASED [None]
  - BLOOD PRESSURE INCREASED [None]
  - BLOOD UREA INCREASED [None]
  - BLOOD URIC ACID INCREASED [None]
  - DIZZINESS [None]
  - DRUG INTERACTION [None]
  - GLYCOSYLATED HAEMOGLOBIN INCREASED [None]
  - HYPERKALAEMIA [None]
  - MALAISE [None]
  - SYNCOPE [None]
